FAERS Safety Report 5565296-1 (Version None)
Quarter: 2007Q4

REPORT INFORMATION
  Report Type: 
  Country: None (occurrence: None)
  Receive Date: 20071218
  Receipt Date: 20020926
  Transmission Date: 20080405
  Serious: Yes (Death, Other)
  Sender: FDA-Public Use
  Company Number: AU-ROCHE-322174

PATIENT
  Age: 58 Year
  Sex: Male

DRUGS (11)
  1. TRETINOIN [Suspect]
     Indication: ACUTE PROMYELOCYTIC LEUKAEMIA
     Route: 065
  2. TRETINOIN [Suspect]
     Route: 065
  3. TRETINOIN [Suspect]
     Route: 065
  4. TRETINOIN [Suspect]
     Route: 065
  5. TRETINOIN [Suspect]
     Route: 065
  6. CYTOSINE ARABINOSIDE [Suspect]
     Indication: ACUTE PROMYELOCYTIC LEUKAEMIA
     Dosage: STANDARD DOSE.
     Route: 065
  7. CYTOSINE ARABINOSIDE [Suspect]
     Route: 065
  8. CYTOSINE ARABINOSIDE [Suspect]
     Dosage: HIGH-DOSE.
     Route: 065
  9. IDARUBICIN HCL [Suspect]
     Indication: ACUTE PROMYELOCYTIC LEUKAEMIA
     Route: 065
  10. AMSACRINE [Suspect]
     Indication: ACUTE PROMYELOCYTIC LEUKAEMIA
     Route: 065
  11. AMSACRINE [Suspect]
     Route: 065

REACTIONS (2)
  - COMPLICATIONS OF TRANSPLANT SURGERY [None]
  - CYTOGENETIC ABNORMALITY [None]
